FAERS Safety Report 25912935 (Version 1)
Quarter: 2025Q4

REPORT INFORMATION
  Report Type: Spontaneous
  Country: CA (occurrence: CA)
  Receive Date: 20251013
  Receipt Date: 20251013
  Transmission Date: 20260118
  Serious: Yes (Death, Other)
  Sender: CELLTRION
  Company Number: CA-CELLTRION INC.-2025CA036430

PATIENT

DRUGS (3)
  1. INFLIXIMAB [Suspect]
     Active Substance: INFLIXIMAB
     Indication: Colitis ulcerative
     Dosage: 650 MILLIGRAM
     Route: 042
  2. INFLIXIMAB [Suspect]
     Active Substance: INFLIXIMAB
     Dosage: 650 MILLIGRAM
     Route: 065
  3. INFLIXIMAB [Suspect]
     Active Substance: INFLIXIMAB
     Dosage: 650 MILLIGRAM
     Route: 042

REACTIONS (4)
  - Death [Fatal]
  - Condition aggravated [Fatal]
  - Off label use [Fatal]
  - Overdose [Unknown]
